FAERS Safety Report 10033418 (Version 3)
Quarter: 2016Q3

REPORT INFORMATION
  Report Type: Spontaneous
  Country: US (occurrence: US)
  Receive Date: 20140325
  Receipt Date: 20160704
  Transmission Date: 20161108
  Serious: Yes (Other)
  Sender: FDA-Public Use
  Company Number: US-AMGEN-USASP2014019846

PATIENT
  Age: 27 Year
  Sex: Female

DRUGS (3)
  1. ENBREL [Suspect]
     Active Substance: ETANERCEPT
     Indication: PSORIATIC ARTHROPATHY
  2. ENBREL [Suspect]
     Active Substance: ETANERCEPT
     Indication: PSORIASIS
     Dosage: 50 MG, TWICE A WEEK
     Route: 058
     Dates: start: 200809, end: 20160608
  3. REMICADE [Suspect]
     Active Substance: INFLIXIMAB
     Indication: PRODUCT USED FOR UNKNOWN INDICATION
     Dosage: UNK
     Route: 065

REACTIONS (9)
  - Psoriasis [Not Recovered/Not Resolved]
  - Obstructed labour [Recovered/Resolved]
  - Maternal exposure before pregnancy [Recovered/Resolved]
  - Drug ineffective [Unknown]
  - Poor peripheral circulation [Recovered/Resolved]
  - Skin discolouration [Recovered/Resolved]
  - Upper respiratory tract infection [Not Recovered/Not Resolved]
  - Psoriatic arthropathy [Unknown]
  - Drug specific antibody present [Unknown]

NARRATIVE: CASE EVENT DATE: 2008
